FAERS Safety Report 16011138 (Version 1)
Quarter: 2019Q1

REPORT INFORMATION
  Report Type: Other
  Country: DE (occurrence: DE)
  Receive Date: 20190227
  Receipt Date: 20190227
  Transmission Date: 20190418
  Serious: Yes (Death, Hospitalization, Disabling, Other)
  Sender: FDA-Public Use
  Company Number: DE-EMCURE PHARMACEUTICALS LTD-2019-EPL-0095

PATIENT
  Age: 76 Year
  Sex: Female

DRUGS (27)
  1. OXA (OXALIPLATIN) [Suspect]
     Active Substance: OXALIPLATIN
     Indication: RECTAL CANCER METASTATIC
     Dosage: UNK
     Route: 065
     Dates: start: 20131028, end: 20131028
  2. FLUOROURACIL. [Suspect]
     Active Substance: FLUOROURACIL
     Dosage: 492 MILLIGRAM, EVERY 2 WEEKS
     Route: 041
     Dates: start: 20131210, end: 20140107
  3. FLUOROURACIL. [Suspect]
     Active Substance: FLUOROURACIL
     Dosage: 492 MILLIGRAM
     Route: 041
     Dates: start: 20140121, end: 20140122
  4. BEVACIZUMAB. [Suspect]
     Active Substance: BEVACIZUMAB
     Indication: RECTAL CANCER METASTATIC
     Dosage: 325 MILLIGRAM, 1 CYCLE
     Route: 042
     Dates: start: 20130912, end: 20131112
  5. FLUOROURACIL. [Suspect]
     Active Substance: FLUOROURACIL
     Dosage: 1 CYCLE UNK
     Route: 041
     Dates: start: 20130912, end: 20131029
  6. KEVATRIL [Concomitant]
     Active Substance: GRANISETRON HYDROCHLORIDE
     Indication: VOMITING
     Dosage: 3 MILLIGRAM, 1 CYCLE
     Route: 042
     Dates: start: 20130912, end: 20131028
  7. NIFEDIPINE. [Concomitant]
     Active Substance: NIFEDIPINE
     Indication: HYPERTENSION
     Dosage: UNK, 1 DAY
     Route: 048
     Dates: start: 1993
  8. FOLINIC ACID [Suspect]
     Active Substance: LEUCOVORIN
     Indication: RECTAL CANCER METASTATIC
     Dosage: 326 MILLIGRAM, EVERY 2 WEEKS
     Route: 042
     Dates: start: 20130913, end: 20131126
  9. FLUOROURACIL. [Suspect]
     Active Substance: FLUOROURACIL
     Dosage: 2905 MILLIGRAM, EVERY 2 WEEKS
     Route: 040
     Dates: start: 20131210, end: 20131212
  10. FOLINIC ACID [Suspect]
     Active Substance: LEUCOVORIN
     Dosage: 570 MILLIGRAM, EVERY 2 WEEKS
     Route: 042
     Dates: start: 20130912, end: 20130912
  11. FLUOROURACIL. [Suspect]
     Active Substance: FLUOROURACIL
     Dosage: 600 MILLIGRAM, EVERY 2 WEEKS
     Route: 040
     Dates: start: 20140108, end: 20140109
  12. FLUOROURACIL. [Suspect]
     Active Substance: FLUOROURACIL
     Dosage: 738 MILLIGRAM
     Route: 040
     Dates: start: 20140107, end: 20140108
  13. FLUOROURACIL. [Suspect]
     Active Substance: FLUOROURACIL
     Dosage: 738 MILLIGRAM
     Route: 040
     Dates: start: 20140121, end: 20140123
  14. FOLINIC ACID [Suspect]
     Active Substance: LEUCOVORIN
     Dosage: 200 MILLIGRAM, EVERY 2 WEEKS
     Route: 042
     Dates: start: 20130912, end: 20131028
  15. FOLINIC ACID [Suspect]
     Active Substance: LEUCOVORIN
     Dosage: 246 MILLIGRAM, EVERY 2 WEEKS
     Route: 042
     Dates: start: 20131210, end: 20140121
  16. EUTHYROX [Concomitant]
     Active Substance: LEVOTHYROXINE SODIUM
     Indication: HYPOTHYROIDISM
     Dosage: 100 MICROGRAM, 1 DAY
     Route: 065
     Dates: start: 1980
  17. FOLINIC ACID [Suspect]
     Active Substance: LEUCOVORIN
     Dosage: 246 MILLIGRAM
     Route: 042
     Dates: start: 20140107, end: 20140108
  18. FLUOROURACIL. [Suspect]
     Active Substance: FLUOROURACIL
     Dosage: 651 MILLIGRAM, EVERY 2 WEEKS
     Route: 041
     Dates: start: 20130912, end: 20131126
  19. FLUOROURACIL. [Suspect]
     Active Substance: FLUOROURACIL
     Dosage: 492 MILLIGRAM
     Route: 041
     Dates: start: 20131210, end: 20140122
  20. CETUXIMAB. [Concomitant]
     Active Substance: CETUXIMAB
     Dosage: 400 MILLIGRAM, TOTAL
     Route: 065
     Dates: start: 20131210, end: 20131210
  21. IRINOTECAN HYDROCHLORIDE. [Suspect]
     Active Substance: IRINOTECAN HYDROCHLORIDE
     Indication: RECTAL CANCER METASTATIC
     Dosage: 221 MILLIGRAM, 2 WEEK
     Route: 042
     Dates: start: 20140107, end: 20140121
  22. FLUOROURACIL. [Suspect]
     Active Substance: FLUOROURACIL
     Dosage: 400 MILLIGRAM
     Route: 040
     Dates: start: 20130912, end: 20131028
  23. FLUOROURACIL. [Suspect]
     Active Substance: FLUOROURACIL
     Dosage: 400 MILLIGRAM
     Route: 041
     Dates: start: 20140108, end: 20140108
  24. FLUOROURACIL. [Suspect]
     Active Substance: FLUOROURACIL
     Indication: RECTAL CANCER METASTATIC
     Dosage: 3908 MILLIGRAM, EVERY 2 WEEKS
     Route: 040
     Dates: start: 20130912, end: 20131128
  25. METHIONINE [Concomitant]
     Active Substance: METHIONINE
     Dosage: 100 MILLIGRAM, 1 DAY
     Route: 065
     Dates: start: 20140113
  26. DEXAMETHASONE. [Concomitant]
     Active Substance: DEXAMETHASONE
     Indication: VOMITING
     Dosage: 12 MILLIGRAM
     Route: 048
     Dates: start: 20130912, end: 20131028
  27. CAPTOPRIL. [Concomitant]
     Active Substance: CAPTOPRIL
     Indication: HYPERTENSION
     Dosage: 50 MILLIGRAM, 1 DAY
     Route: 048
     Dates: start: 1993

REACTIONS (5)
  - Musculoskeletal pain [Recovered/Resolved]
  - Abdominal pain [Recovered/Resolved]
  - Malignant neoplasm progression [Fatal]
  - Deep vein thrombosis [Recovering/Resolving]
  - Hydronephrosis [Recovered/Resolved]

NARRATIVE: CASE EVENT DATE: 20131112
